FAERS Safety Report 4796492-9 (Version None)
Quarter: 2005Q3

REPORT INFORMATION
  Report Type: 
  Country: None (occurrence: None)
  Receive Date: 20050916
  Receipt Date: 20050316
  Transmission Date: 20060218
  Serious: Yes (Other)
  Sender: FDA-Public Use
  Company Number: US-JNJFOC-20041007509

PATIENT
  Age: 13 Year
  Sex: Male
  Weight: 61.2356 kg

DRUGS (5)
  1. TOPAMAX [Suspect]
     Indication: MIGRAINE
     Dosage: 25 MG, 1 IN 1 DAY, ORAL
     Route: 048
  2. CLARINEX [Concomitant]
  3. ZOLOFT [Concomitant]
  4. IMMITREX (SUMATRIPTAN) [Concomitant]
  5. IBUPROFEN [Concomitant]

REACTIONS (5)
  - ABNORMAL SENSATION IN EYE [None]
  - EYE PAIN [None]
  - MYOPIA [None]
  - VISION BLURRED [None]
  - VISUAL DISTURBANCE [None]
